FAERS Safety Report 7498379-X (Version None)
Quarter: 2011Q2

REPORT INFORMATION
  Report Type: 
  Country: None (occurrence: None)
  Receive Date: 20110524
  Receipt Date: 20110425
  Transmission Date: 20111010
  Serious: Yes (Other)
  Sender: FDA-Public Use
  Company Number: US-BAYER-2011-008722

PATIENT
  Age: 30 Year
  Sex: Female
  Weight: 95.238 kg

DRUGS (7)
  1. ALBUTEROL SULFATE AUTOHALER [Concomitant]
  2. YAZ [Suspect]
     Dosage: UNK
     Dates: start: 20090501, end: 20091101
  3. SINGULAIR [Concomitant]
     Dosage: UNK
     Dates: start: 20070101, end: 20090501
  4. BENTYL [Concomitant]
  5. YAZ [Suspect]
     Indication: PRODUCT USED FOR UNKNOWN INDICATION
     Dosage: UNK
     Dates: start: 20061201, end: 20091101
  6. PROTONIX [Concomitant]
  7. PROAIR HFA [Concomitant]
     Dosage: UNK
     Dates: start: 20070101, end: 20090501

REACTIONS (8)
  - ABDOMINAL PAIN [None]
  - CHOLECYSTITIS [None]
  - ABDOMINAL DISCOMFORT [None]
  - WEIGHT DECREASED [None]
  - HEPATIC ENZYME INCREASED [None]
  - DIARRHOEA [None]
  - ABDOMINAL DISTENSION [None]
  - FLATULENCE [None]
